FAERS Safety Report 7088645-4 (Version None)
Quarter: 2010Q4

REPORT INFORMATION
  Report Type: 
  Country: None (occurrence: None)
  Receive Date: 20101108
  Receipt Date: 20101101
  Transmission Date: 20110411
  Serious: Yes (Hospitalization)
  Sender: FDA-Public Use
  Company Number: GB-BAYER-201011922GPV

PATIENT
  Age: 54 Year
  Sex: Female

DRUGS (6)
  1. BETAFERON [Suspect]
     Indication: MULTIPLE SCLEROSIS
     Route: 058
     Dates: start: 20000807, end: 20091204
  2. ATENOLOL [Concomitant]
     Indication: PRODUCT USED FOR UNKNOWN INDICATION
  3. OMEPRAZOLE [Concomitant]
     Indication: PRODUCT USED FOR UNKNOWN INDICATION
  4. PARACETAMOL [Concomitant]
     Indication: PRODUCT USED FOR UNKNOWN INDICATION
  5. SATIVEX [Concomitant]
     Indication: PRODUCT USED FOR UNKNOWN INDICATION
  6. LEVOTHYROXINE SODIUM [Concomitant]
     Indication: PRODUCT USED FOR UNKNOWN INDICATION

REACTIONS (3)
  - AUTOIMMUNE HEPATITIS [None]
  - JAUNDICE [None]
  - LIVER FUNCTION TEST ABNORMAL [None]
